FAERS Safety Report 17153486 (Version 1)
Quarter: 2019Q4

REPORT INFORMATION
  Report Type: Spontaneous
  Country: US (occurrence: US)
  Receive Date: 20191213
  Receipt Date: 20191213
  Transmission Date: 20200122
  Serious: Yes (Other)
  Sender: FDA-Public Use
  Company Number: US-CHIESI USA, INC.-US-2019CHI000487

PATIENT

DRUGS (3)
  1. CLEVIDIPINE [Suspect]
     Active Substance: CLEVIDIPINE
     Indication: BLOOD PRESSURE MANAGEMENT
     Dosage: UNK
     Route: 065
  2. CLEVIDIPINE [Suspect]
     Active Substance: CLEVIDIPINE
     Dosage: 10 MG/H, UNK
     Route: 065
  3. CLEVIDIPINE [Suspect]
     Active Substance: CLEVIDIPINE
     Dosage: 16 MG/H, UNK
     Route: 065

REACTIONS (4)
  - Drug ineffective [Unknown]
  - Hypoxia [Recovered/Resolved]
  - Off label use [Recovered/Resolved]
  - Ventilation perfusion mismatch [Unknown]
